FAERS Safety Report 9257093 (Version 1)
Quarter: 2013Q2

REPORT INFORMATION
  Report Type: Spontaneous
  Country: DE (occurrence: None)
  Receive Date: 20130424
  Receipt Date: 20130424
  Transmission Date: 20140414
  Serious: Yes (Hospitalization, Other)
  Sender: FDA-Public Use
  Company Number: GER/GER/13/0029048

PATIENT
  Age: 48 Year
  Sex: Male

DRUGS (3)
  1. CITALOPRAM [Suspect]
     Indication: PRODUCT USED FOR UNKNOWN INDICATION
     Route: 048
     Dates: start: 201208, end: 20130228
  2. LYRICA (PREGABALIN) [Concomitant]
  3. MIRTAZAPINE (MIRTAZAPINE) [Concomitant]

REACTIONS (2)
  - Ejaculation disorder [None]
  - Male orgasmic disorder [None]
